FAERS Safety Report 4743337-9 (Version None)
Quarter: 2005Q3

REPORT INFORMATION
  Report Type: 
  Country: None (occurrence: None)
  Receive Date: 20050809
  Receipt Date: 20050725
  Transmission Date: 20060218
  Serious: No
  Sender: FDA-Public Use
  Company Number: US015695

PATIENT
  Age: 21 Month
  Sex: Female

DRUGS (1)
  1. ACTIQ [Suspect]
     Dates: start: 20050725, end: 20050725

REACTIONS (2)
  - ACCIDENTAL EXPOSURE [None]
  - HYPERHIDROSIS [None]
